FAERS Safety Report 4998223-6 (Version None)
Quarter: 2006Q2

REPORT INFORMATION
  Report Type: 
  Country: None (occurrence: None)
  Receive Date: 20060510
  Receipt Date: 20060501
  Transmission Date: 20061013
  Serious: Yes (Death, Hospitalization)
  Sender: FDA-Public Use
  Company Number: US-MERCK-0605USA00505

PATIENT
  Age: 85 Year
  Sex: Female
  Weight: 80 kg

DRUGS (5)
  1. VIOXX [Suspect]
     Indication: ARTHRITIS
     Route: 048
     Dates: start: 20000501, end: 20020204
  2. TYLENOL [Concomitant]
     Route: 065
  3. DARVOCET [Concomitant]
     Route: 065
  4. DARVOCET [Concomitant]
     Route: 065
  5. DARVOCET [Concomitant]
     Route: 065

REACTIONS (14)
  - ABDOMINAL PAIN [None]
  - CATARACT [None]
  - CEREBROVASCULAR ACCIDENT [None]
  - DEATH [None]
  - DYSPHAGIA [None]
  - DYSPNOEA [None]
  - DYSPNOEA EXERTIONAL [None]
  - HYPERTENSION [None]
  - INFECTION [None]
  - PNEUMONIA [None]
  - REFLUX OESOPHAGITIS [None]
  - RHINITIS ALLERGIC [None]
  - TREMOR [None]
  - UMBILICAL HERNIA [None]
